FAERS Safety Report 14705830 (Version 14)
Quarter: 2019Q1

REPORT INFORMATION
  Report Type: Spontaneous
  Country: CA (occurrence: CA)
  Receive Date: 20180402
  Receipt Date: 20190311
  Transmission Date: 20190417
  Serious: Yes (Other)
  Sender: FDA-Public Use
  Company Number: CA-CELLTRION INC.-2017CA014408

PATIENT

DRUGS (12)
  1. VANCOMYCIN [Concomitant]
     Active Substance: VANCOMYCIN
     Dosage: UNK
     Route: 065
  2. PENTASA [Concomitant]
     Active Substance: MESALAMINE
     Dosage: 12 DF, 1X/DAY
     Route: 065
  3. INFLECTRA [Suspect]
     Active Substance: INFLIXIMAB-DYYB
     Dosage: 400 MG (0, 2, 6 THEN EVERY 8 WEEKS)
     Route: 042
     Dates: start: 20180918
  4. INFLECTRA [Suspect]
     Active Substance: INFLIXIMAB-DYYB
     Dosage: 400 MG (0, 2, 6 THEN EVERY 8 WEEKS)
     Route: 042
     Dates: start: 20180321
  5. INFLECTRA [Suspect]
     Active Substance: INFLIXIMAB-DYYB
     Indication: COLITIS ULCERATIVE
     Dosage: 400 MG (0, 2, 6 THEN EVERY 8 WEEKS)
     Route: 042
     Dates: start: 20170831
  6. AZATHIOPRINE. [Concomitant]
     Active Substance: AZATHIOPRINE
     Dosage: 50 MG, DAILY
  7. ASACOL [Concomitant]
     Active Substance: MESALAMINE
     Dosage: 50 MG, DAILY
     Route: 065
  8. INFLECTRA [Suspect]
     Active Substance: INFLIXIMAB-DYYB
     Dosage: 400 MG (0, 2, 6 THEN EVERY 8 WEEKS)
     Route: 042
     Dates: start: 20180125
  9. INFLECTRA [Suspect]
     Active Substance: INFLIXIMAB-DYYB
     Dosage: 400 MG, (EVERY 0, 2, 6 THEN EVERY 8 WEEKS)
     Route: 042
     Dates: start: 20180329
  10. INFLECTRA [Suspect]
     Active Substance: INFLIXIMAB-DYYB
     Dosage: 400 MG (0, 2, 6 THEN EVERY 8 WEEKS)
     Route: 042
     Dates: start: 20180727
  11. INFLECTRA [Suspect]
     Active Substance: INFLIXIMAB-DYYB
     Dosage: 400 MG (EVERY 8 WEEKS)
     Route: 042
     Dates: start: 20181205
  12. INFLECTRA [Suspect]
     Active Substance: INFLIXIMAB-DYYB
     Dosage: 400 MG (EVERY 8 WEEKS)
     Route: 042
     Dates: start: 20190222

REACTIONS (17)
  - Vomiting [Unknown]
  - Sinus arrhythmia [Unknown]
  - Poor quality sleep [Not Recovered/Not Resolved]
  - Bradycardia [Unknown]
  - Heart rate irregular [Unknown]
  - Post-traumatic stress disorder [Unknown]
  - Insomnia [Unknown]
  - Social avoidant behaviour [Unknown]
  - Product use issue [Unknown]
  - Headache [Unknown]
  - Condition aggravated [Unknown]
  - Malaise [Unknown]
  - Nausea [Not Recovered/Not Resolved]
  - Product dose omission [Unknown]
  - Weight increased [Unknown]
  - Drug effect incomplete [Unknown]
  - Asthenia [Unknown]

NARRATIVE: CASE EVENT DATE: 20180320
